FAERS Safety Report 11746299 (Version 1)
Quarter: 2015Q4

REPORT INFORMATION
  Report Type: Spontaneous
  Country: US (occurrence: US)
  Receive Date: 20151117
  Receipt Date: 20151117
  Transmission Date: 20160304
  Serious: No
  Sender: FDA-Public Use
  Company Number: US-BAYER-00/02334-USE

PATIENT
  Age: 54 Year
  Sex: Female
  Weight: 55 kg

DRUGS (2)
  1. PROMETRIUM [Concomitant]
     Active Substance: PROGESTERONE
  2. CLIMARA [Suspect]
     Active Substance: ESTRADIOL
     Indication: HORMONE REPLACEMENT THERAPY
     Dosage: 0.05 MG/DAY
     Dates: start: 200002

REACTIONS (3)
  - Mental impairment [Recovered/Resolved]
  - Hot flush [Not Recovered/Not Resolved]
  - Breast enlargement [None]

NARRATIVE: CASE EVENT DATE: 200004
